FAERS Safety Report 6521983-X (Version None)
Quarter: 2009Q4

REPORT INFORMATION
  Report Type: 
  Country: None (occurrence: None)
  Receive Date: 20091230
  Receipt Date: 20091216
  Transmission Date: 20100525
  Serious: Yes (Death, Life-Threatening, Hospitalization)
  Sender: FDA-Public Use
  Company Number: TW-PFIZER INC-2009311308

PATIENT
  Age: 72 Year
  Sex: Male

DRUGS (7)
  1. IRINOTECAN HCL [Suspect]
     Indication: COLORECTAL CANCER
     Dosage: 253 MG, UNK
     Route: 042
     Dates: start: 20091119, end: 20091119
  2. FLUOROURACIL [Concomitant]
     Indication: COLORECTAL CANCER
     Dosage: 2115 MG, UNK
     Route: 017
     Dates: start: 20091119, end: 20091119
  3. LEUCOVORIN CALCIUM [Concomitant]
     Indication: COLORECTAL CANCER
     Dosage: 141 MG, UNK
     Dates: start: 20091119, end: 20091119
  4. MAGNESIUM OXIDE [Concomitant]
  5. MORPHINE [Concomitant]
     Indication: PAIN
  6. FENTANYL [Concomitant]
     Indication: PAIN
  7. CIMETIDINE [Concomitant]

REACTIONS (5)
  - DYSPNOEA [None]
  - PANCYTOPENIA [None]
  - PNEUMONIA [None]
  - RESPIRATORY FAILURE [None]
  - SEPSIS [None]
